FAERS Safety Report 11848495 (Version 1)
Quarter: 2015Q4

REPORT INFORMATION
  Report Type: Other
  Country: US (occurrence: US)
  Receive Date: 20151218
  Receipt Date: 20151218
  Transmission Date: 20160305
  Serious: Yes (Other)
  Sender: FDA-Public Use
  Company Number: US-LUPIN PHARMACEUTICALS INC.-2015-04101

PATIENT
  Age: 23 Year
  Sex: Female
  Weight: 43.58 kg

DRUGS (3)
  1. PANTOPRAZOLE [Concomitant]
     Active Substance: PANTOPRAZOLE SODIUM
     Indication: PRODUCT USED FOR UNKNOWN INDICATION
     Route: 065
  2. CIPROFLOXACIN. [Suspect]
     Active Substance: CIPROFLOXACIN
     Indication: DIARRHOEA INFECTIOUS
     Route: 065
  3. MOXIFLOXACIN. [Suspect]
     Active Substance: MOXIFLOXACIN
     Indication: DIARRHOEA INFECTIOUS
     Dosage: 400 MG DAILY
     Route: 065
     Dates: start: 201008

REACTIONS (37)
  - Decreased appetite [Unknown]
  - Orthostatic intolerance [Unknown]
  - Insomnia [Unknown]
  - Multiple chemical sensitivity [Unknown]
  - Arthralgia [Unknown]
  - Tachycardia [Unknown]
  - Cognitive disorder [Unknown]
  - Food intolerance [Unknown]
  - Mydriasis [Unknown]
  - Dry eye [Unknown]
  - Stab wound [Unknown]
  - Weight decreased [Unknown]
  - Tendonitis [Unknown]
  - Fatigue [Unknown]
  - Dyspnoea [Unknown]
  - Gastrooesophageal reflux disease [Unknown]
  - Muscle contractions involuntary [Unknown]
  - Nausea [Unknown]
  - Dizziness [Unknown]
  - Diarrhoea [Unknown]
  - Seizure [Unknown]
  - Dry mouth [Unknown]
  - Vibratory sense increased [Unknown]
  - Micturition urgency [Unknown]
  - Gastrointestinal pain [Unknown]
  - Sinusitis [Unknown]
  - Hypotension [Unknown]
  - Asthenia [Unknown]
  - Ulcerative keratitis [Unknown]
  - Upper respiratory tract infection [Unknown]
  - Vomiting [Unknown]
  - Myalgia [Unknown]
  - Migraine [Unknown]
  - Impaired gastric emptying [Unknown]
  - Burning sensation [Unknown]
  - Paraesthesia [Unknown]
  - Hypoaesthesia [Unknown]
